FAERS Safety Report 7365682-3 (Version None)
Quarter: 2011Q1

REPORT INFORMATION
  Report Type: 
  Country: None (occurrence: None)
  Receive Date: 20110316
  Receipt Date: 20110316
  Transmission Date: 20110831
  Serious: Yes (Other)
  Sender: FDA-Public Use
  Company Number: None

PATIENT
  Age: 65 Year
  Sex: Female
  Weight: 81.4 kg

DRUGS (2)
  1. OMEPRAZOLE [Concomitant]
  2. SIMVASTATIN [Suspect]
     Indication: BLOOD CHOLESTEROL INCREASED
     Dosage: 20 MG TABLET ONCE A DAY ORALLY
     Route: 048
     Dates: start: 20110303, end: 20110308

REACTIONS (8)
  - ARTHRALGIA [None]
  - MUSCULAR WEAKNESS [None]
  - MUSCULOSKELETAL PAIN [None]
  - CHEST PAIN [None]
  - ASTHENIA [None]
  - PAIN [None]
  - MYALGIA [None]
  - PAIN IN EXTREMITY [None]
